FAERS Safety Report 7329173-8 (Version None)
Quarter: 2011Q1

REPORT INFORMATION
  Report Type: 
  Country: None (occurrence: None)
  Receive Date: 20110303
  Receipt Date: 20110222
  Transmission Date: 20110831
  Serious: Yes (Hospitalization)
  Sender: FDA-Public Use
  Company Number: A0877040A

PATIENT
  Sex: Male
  Weight: 89.1 kg

DRUGS (8)
  1. AVANDIA [Suspect]
     Route: 048
  2. COREG [Concomitant]
  3. LISINOPRIL [Concomitant]
  4. LIPITOR [Concomitant]
  5. ASPIRIN [Concomitant]
  6. LASIX [Concomitant]
  7. METFORMIN [Concomitant]
  8. AVANDAMET [Suspect]
     Route: 048

REACTIONS (8)
  - FLUID RETENTION [None]
  - SICK SINUS SYNDROME [None]
  - MYOCARDIAL INFARCTION [None]
  - FLUID OVERLOAD [None]
  - CARDIAC FAILURE CONGESTIVE [None]
  - CARDIAC ARREST [None]
  - ATRIAL FIBRILLATION [None]
  - CORONARY ARTERY DISEASE [None]
